FAERS Safety Report 7459252-6 (Version None)
Quarter: 2011Q2

REPORT INFORMATION
  Report Type: 
  Country: None (occurrence: None)
  Receive Date: 20110505
  Receipt Date: 20110420
  Transmission Date: 20111010
  Serious: Yes (Hospitalization, Other)
  Sender: FDA-Public Use
  Company Number: JP-JNJFOC-20100704859

PATIENT
  Sex: Male
  Weight: 56 kg

DRUGS (16)
  1. REMICADE [Suspect]
     Route: 042
  2. REMICADE [Suspect]
     Route: 042
  3. PENTASA [Concomitant]
     Indication: CROHN'S DISEASE
     Route: 048
  4. BIO THREE [Concomitant]
     Indication: CROHN'S DISEASE
     Route: 048
  5. UNKNOWN ADRENAL HORMONE PREPARATIONS [Concomitant]
     Indication: PREMEDICATION
     Dosage: RECEIVED 8 DOSES DURING THIS TIME
  6. UNKNOWN ADRENAL HORMONE PREPARATIONS [Concomitant]
     Indication: PROPHYLAXIS
     Dosage: RECEIVED 8 DOSES DURING THIS TIME
  7. REMICADE [Suspect]
     Route: 042
  8. LEUKERIN [Concomitant]
     Indication: CROHN'S DISEASE
     Route: 048
  9. FOLIC ACID [Concomitant]
  10. REMICADE [Suspect]
     Route: 042
  11. ELENTAL [Concomitant]
     Route: 051
  12. REMICADE [Suspect]
     Indication: CROHN'S DISEASE
     Route: 042
  13. REMICADE [Suspect]
     Route: 042
  14. REMICADE [Suspect]
     Route: 042
  15. REMICADE [Suspect]
     Route: 042
  16. FERROUS CITRATE [Concomitant]
     Indication: IRON DEFICIENCY ANAEMIA
     Route: 048

REACTIONS (4)
  - ABDOMINAL WALL ABSCESS [None]
  - HEPATIC FUNCTION ABNORMAL [None]
  - GASTROINTESTINAL PERFORATION [None]
  - WHITE BLOOD CELL COUNT DECREASED [None]
